FAERS Safety Report 11859671 (Version 2)
Quarter: 2015Q4

REPORT INFORMATION
  Report Type: Spontaneous
  Country: ES (occurrence: ES)
  Receive Date: 20151221
  Receipt Date: 20151222
  Transmission Date: 20160305
  Serious: Yes (Hospitalization)
  Sender: FDA-Public Use
  Company Number: ES-KADMON PHARMACEUTICALS, LLC-KAD201512-004545

PATIENT
  Age: 72 Year
  Sex: Female
  Weight: 59.8 kg

DRUGS (15)
  1. CELLCEPT [Concomitant]
     Active Substance: MYCOPHENOLATE MOFETIL\MYCOPHENOLATE MOFETIL HYDROCHLORIDE
  2. RIBAVIRIN 200 MG TABLETS [Suspect]
     Active Substance: RIBAVIRIN
     Indication: HEPATITIS C
     Route: 048
     Dates: start: 20150925
  3. ALENDRONATO [Concomitant]
     Active Substance: ALENDRONATE SODIUM
  4. ADALAT [Concomitant]
     Active Substance: NIFEDIPINE
  5. ALDACTONE [Concomitant]
     Active Substance: SPIRONOLACTONE
     Dates: end: 20151010
  6. DACORTIN [Concomitant]
     Active Substance: PREDNISONE
  7. ATORVASTATIN [Concomitant]
     Active Substance: ATORVASTATIN
  8. ZOLPIDEM [Concomitant]
     Active Substance: ZOLPIDEM\ZOLPIDEM TARTRATE
  9. VIEKIRAX [Suspect]
     Active Substance: OMBITASVIR\PARITAPREVIR\RITONAVIR
     Indication: HEPATITIS C
     Dosage: TABLET
     Route: 048
     Dates: start: 20150925
  10. OMEPRAZOLE. [Concomitant]
     Active Substance: OMEPRAZOLE
     Route: 048
  11. ALDACTONE [Concomitant]
     Active Substance: SPIRONOLACTONE
     Dates: start: 20151010
  12. FUROSEMIDE. [Concomitant]
     Active Substance: FUROSEMIDE
  13. EXVIERA 250 MG TABLET [Suspect]
     Active Substance: DASABUVIR
     Indication: HEPATITIS C
     Route: 048
     Dates: start: 20150925
  14. ADVAGRAF [Suspect]
     Active Substance: TACROLIMUS
     Indication: RENAL TRANSPLANT
     Route: 048
  15. CINACALCET [Concomitant]
     Active Substance: CINACALCET
     Route: 048

REACTIONS (11)
  - Metabolic acidosis [Recovered/Resolved]
  - Vomiting [Recovered/Resolved]
  - Food intolerance [Recovered/Resolved]
  - Acute prerenal failure [Recovered/Resolved]
  - Cholestasis [Unknown]
  - Hyperbilirubinaemia [Unknown]
  - Urinary tract infection [Recovered/Resolved]
  - Nephropathy toxic [Unknown]
  - Dehydration [Recovered/Resolved]
  - Dehydration [Unknown]
  - Vomiting [Unknown]

NARRATIVE: CASE EVENT DATE: 20151002
